FAERS Safety Report 6181648-3 (Version None)
Quarter: 2009Q2

REPORT INFORMATION
  Report Type: 
  Country: None (occurrence: None)
  Receive Date: 20090506
  Receipt Date: 20090427
  Transmission Date: 20091009
  Serious: Yes (Other)
  Sender: FDA-Public Use
  Company Number: A0782417A

PATIENT
  Sex: Female
  Weight: 75 kg

DRUGS (2)
  1. ZINNAT [Suspect]
     Indication: URINARY TRACT INFECTION
     Dosage: 500MG TWICE PER DAY
     Route: 065
     Dates: start: 20090426
  2. SELOZOK [Concomitant]

REACTIONS (5)
  - ANORECTAL DISCOMFORT [None]
  - FLATULENCE [None]
  - GASTROINTESTINAL HAEMORRHAGE [None]
  - MUSCLE SPASMS [None]
  - NAUSEA [None]
